FAERS Safety Report 18213088 (Version 1)
Quarter: 2020Q3

REPORT INFORMATION
  Report Type: Spontaneous
  Country: US (occurrence: US)
  Receive Date: 20200830
  Receipt Date: 20200830
  Transmission Date: 20201103
  Serious: Yes (Life-Threatening, Hospitalization)
  Sender: FDA-Public Use
  Company Number: None

PATIENT
  Age: 44 Year
  Sex: Female
  Weight: 60.75 kg

DRUGS (9)
  1. JANUVIA [Suspect]
     Active Substance: SITAGLIPTIN PHOSPHATE
     Indication: BLOOD GLUCOSE ABNORMAL
     Dosage: ?          QUANTITY:1 TABLET(S);?
     Route: 048
     Dates: start: 20190905, end: 20200722
  2. GLIPIZIDE. [Concomitant]
     Active Substance: GLIPIZIDE
  3. DULERA INHALER [Concomitant]
  4. THERA MULTI VITAMINS [Concomitant]
  5. VITAMIN B1 [Concomitant]
     Active Substance: THIAMINE HYDROCHLORIDE
  6. LIVALO STATIN [Concomitant]
  7. BLOOD GLUCOSE TEST [Concomitant]
  8. OMEGA 3 ETHY ESTERS [Concomitant]
  9. FENOFIBRATE. [Concomitant]
     Active Substance: FENOFIBRATE

REACTIONS (14)
  - Pancreatitis acute [None]
  - Abdominal distension [None]
  - Heart rate increased [None]
  - Lethargy [None]
  - Abdominal pain [None]
  - Swelling [None]
  - Discomfort [None]
  - Loss of consciousness [None]
  - Delirium [None]
  - Respiratory disorder [None]
  - Malnutrition [None]
  - Pain [None]
  - Quality of life decreased [None]
  - Weight decreased [None]

NARRATIVE: CASE EVENT DATE: 20200722
